FAERS Safety Report 8257628-0 (Version None)
Quarter: 2012Q2

REPORT INFORMATION
  Report Type: 
  Country: None (occurrence: None)
  Receive Date: 20120403
  Receipt Date: 20120312
  Transmission Date: 20120825
  Serious: Yes (Hospitalization)
  Sender: FDA-Public Use
  Company Number: US-ABBOTT-12P-163-0911000-00

PATIENT
  Sex: Female
  Weight: 90.8 kg

DRUGS (4)
  1. DEPAKOTE [Suspect]
     Dosage: 500 MG QAM AND 1000 QPM
     Route: 048
     Dates: start: 20111001
  2. DEPAKOTE [Suspect]
     Indication: CONVULSION
     Route: 048
     Dates: start: 19920101, end: 20111001
  3. FELBATOL [Suspect]
     Indication: CONVULSION
     Route: 048
     Dates: start: 19920101, end: 20111101
  4. FELBATOL [Suspect]
     Dates: start: 20111101

REACTIONS (3)
  - CONVULSION [None]
  - TREATMENT NONCOMPLIANCE [None]
  - GRAND MAL CONVULSION [None]
